FAERS Safety Report 9204375 (Version 2)
Quarter: 2013Q2

REPORT INFORMATION
  Report Type: Report from Study
  Country: US (occurrence: US)
  Receive Date: 20130402
  Receipt Date: 20130415
  Transmission Date: 20140414
  Serious: No
  Sender: FDA-Public Use
  Company Number: US-ROCHE-1207140

PATIENT
  Age: 44 Year
  Sex: Female
  Weight: 57.48 kg

DRUGS (2)
  1. VEMURAFENIB [Suspect]
     Indication: METASTATIC MALIGNANT MELANOMA
     Route: 048
     Dates: start: 20130304
  2. ALDESLEUKIN [Suspect]
     Indication: METASTATIC MALIGNANT MELANOMA
     Dosage: 600000 IU/KG//DOSE. SECOND COURSE GIVEN WITHOUT RECURRENCE
     Route: 065
     Dates: start: 20130318, end: 20130322

REACTIONS (1)
  - Myocarditis [Recovered/Resolved]
